FAERS Safety Report 15632634 (Version 1)
Quarter: 2018Q4

REPORT INFORMATION
  Report Type: Report from Study
  Country: CA (occurrence: CA)
  Receive Date: 20181119
  Receipt Date: 20181119
  Transmission Date: 20190205
  Serious: Yes (Other)
  Sender: FDA-Public Use
  Company Number: CA-TEVA-2018-CA-975886

PATIENT
  Sex: Female

DRUGS (10)
  1. ATIVAN [Concomitant]
     Active Substance: LORAZEPAM
  2. NALTREXONE [Concomitant]
     Active Substance: NALTREXONE
  3. VITAMIN D [Concomitant]
     Active Substance: CHOLECALCIFEROL
  4. FAMPRIDINE [Concomitant]
     Active Substance: DALFAMPRIDINE
  5. TOVIAZ [Concomitant]
     Active Substance: FESOTERODINE FUMARATE
  6. MYRBETRIQ [Concomitant]
     Active Substance: MIRABEGRON
  7. ZOLOFT [Concomitant]
     Active Substance: SERTRALINE HYDROCHLORIDE
  8. COPAXONE [Suspect]
     Active Substance: GLATIRAMER ACETATE
     Indication: MULTIPLE SCLEROSIS
     Dosage: 20 MILLIGRAM DAILY;
     Route: 058
     Dates: start: 19990310, end: 201810
  9. PANTOLOC [Concomitant]
     Active Substance: PANTOPRAZOLE SODIUM
  10. CRANBERRY PILLS [Concomitant]

REACTIONS (5)
  - Throat tightness [Unknown]
  - Headache [Unknown]
  - Multiple sclerosis [Unknown]
  - Anaphylactic reaction [Unknown]
  - Feeling hot [Unknown]
